FAERS Safety Report 18267325 (Version 1)
Quarter: 2020Q3

REPORT INFORMATION
  Report Type: Spontaneous
  Country: US (occurrence: US)
  Receive Date: 20200915
  Receipt Date: 20200915
  Transmission Date: 20201103
  Serious: Yes (Disabling)
  Sender: FDA-Public Use
  Company Number: None

PATIENT
  Age: 54 Year
  Sex: Female
  Weight: 86.18 kg

DRUGS (5)
  1. STRATTERA [Concomitant]
     Active Substance: ATOMOXETINE HYDROCHLORIDE
  2. BUSPAR 20MG [Concomitant]
  3. NEXPLANON [Suspect]
     Active Substance: ETONOGESTREL
  4. LEVOTHYROXINE 125MCG [Concomitant]
     Active Substance: LEVOTHYROXINE SODIUM
  5. CYMBALTA 90MG [Concomitant]

REACTIONS (6)
  - Device breakage [None]
  - Depression [None]
  - Crying [None]
  - Mood altered [None]
  - Suicidal ideation [None]
  - Anxiety [None]

NARRATIVE: CASE EVENT DATE: 20200703
